FAERS Safety Report 5638894-4 (Version None)
Quarter: 2008Q1

REPORT INFORMATION
  Report Type: 
  Country: None (occurrence: None)
  Receive Date: 20080226
  Receipt Date: 20080215
  Transmission Date: 20080703
  Serious: Yes (Other)
  Sender: FDA-Public Use
  Company Number: US-ROCHE-547569

PATIENT
  Age: 69 Year
  Sex: Female

DRUGS (2)
  1. BONIVA [Suspect]
     Indication: DRUG USE FOR UNKNOWN INDICATION
     Dosage: PATIENT RECEIVED THERAPY FOR SEVERAL MONTHS.
     Route: 048
     Dates: end: 20070901
  2. BONIVA [Concomitant]
     Dosage: FORMULATION REPORTED AS INJECTION

REACTIONS (1)
  - CARDIAC DISORDER [None]
